FAERS Safety Report 20691819 (Version 1)
Quarter: 2022Q2

REPORT INFORMATION
  Report Type: Report from Study
  Country: US (occurrence: US)
  Receive Date: 20220408
  Receipt Date: 20220408
  Transmission Date: 20220721
  Serious: Yes (Death, Hospitalization)
  Sender: FDA-Public Use
  Company Number: US-PFIZER INC-202200532380

PATIENT
  Age: 62 Year
  Sex: Male

DRUGS (2)
  1. BRAFTOVI [Suspect]
     Active Substance: ENCORAFENIB
     Indication: Cutaneous T-cell lymphoma
     Dosage: UNK
     Dates: start: 20210803, end: 20220317
  2. MEKTOVI [Suspect]
     Active Substance: BINIMETINIB
     Indication: Cutaneous T-cell lymphoma
     Dosage: UNK
     Dates: start: 20210803, end: 20220317

REACTIONS (2)
  - Death [Fatal]
  - Off label use [Unknown]

NARRATIVE: CASE EVENT DATE: 20210803
